FAERS Safety Report 20370669 (Version 1)
Quarter: 2022Q1

REPORT INFORMATION
  Report Type: Spontaneous
  Country: US (occurrence: US)
  Receive Date: 20220124
  Receipt Date: 20220124
  Transmission Date: 20220423
  Serious: Yes (Other)
  Sender: FDA-Public Use
  Company Number: US-ELI_LILLY_AND_COMPANY-US202201004576

PATIENT
  Age: 46 Year
  Sex: Male

DRUGS (1)
  1. HUMULIN R [Suspect]
     Active Substance: INSULIN HUMAN
     Indication: Product used for unknown indication
     Dosage: UNK UNK, UNKNOWN
     Route: 065

REACTIONS (7)
  - Eye disorder [Unknown]
  - Muscular weakness [Unknown]
  - COVID-19 [Unknown]
  - Blood glucose increased [Unknown]
  - Macular oedema [Unknown]
  - Glycosylated haemoglobin increased [Unknown]
  - Wrong technique in product usage process [Unknown]

NARRATIVE: CASE EVENT DATE: 20200501
